FAERS Safety Report 4764830-9 (Version None)
Quarter: 2005Q3

REPORT INFORMATION
  Report Type: 
  Country: None (occurrence: None)
  Receive Date: 20050907
  Receipt Date: 20050822
  Transmission Date: 20060218
  Serious: Yes (Hospitalization)
  Sender: FDA-Public Use
  Company Number: B01200400157

PATIENT
  Age: 73 Year
  Sex: Female

DRUGS (7)
  1. CLOPIDOGREL BISULFATE [Suspect]
     Indication: ISCHAEMIA
     Dosage: 75 MG QD ORAL
     Route: 048
     Dates: start: 20030723, end: 20040122
  2. CLOPIDOGREL BISULFATE [Suspect]
     Indication: PROPHYLAXIS
     Dosage: 75 MG QD ORAL
     Route: 048
     Dates: start: 20030723, end: 20040122
  3. ACETYLSALICYLIC ACID SRT [Concomitant]
  4. LASIX [Concomitant]
  5. ENALAPRIL [Concomitant]
  6. ADALAT [Concomitant]
  7. ELTROXIN (LEVOTHYROXINE SODIUM) [Concomitant]

REACTIONS (3)
  - CONJUNCTIVITIS [None]
  - ENDOCRINE OPHTHALMOPATHY [None]
  - HYPERTHYROIDISM [None]
